FAERS Safety Report 6790363-4 (Version None)
Quarter: 2010Q2

REPORT INFORMATION
  Report Type: 
  Country: None (occurrence: None)
  Receive Date: 20100624
  Receipt Date: 20100611
  Transmission Date: 20101027
  Serious: Yes (Hospitalization, Other)
  Sender: FDA-Public Use
  Company Number: PHHY2010US38606

PATIENT
  Sex: Female

DRUGS (13)
  1. FEMARA [Suspect]
     Dosage: 2.5 MG, DAILY
     Route: 048
     Dates: start: 20100427
  2. ZOVIRAX [Concomitant]
  3. ATENOLOL [Concomitant]
     Dosage: 25 MG, DAILY
  4. HYDROCHLOROTHIAZIDE [Concomitant]
     Dosage: 25 MG
     Route: 048
  5. TEMAZEPAM [Concomitant]
     Dosage: 30 MG
     Route: 048
  6. PROPOXYPHENE [Concomitant]
     Dosage: 100-650 MNG
  7. CLONAZEPAM [Concomitant]
     Dosage: 2 MG
     Route: 048
  8. PLAVIX [Concomitant]
     Dosage: 75 MG, DAILY
     Route: 048
  9. VITAMIN D [Concomitant]
  10. LIPITOR [Concomitant]
     Dosage: 10 MG
     Route: 048
  11. LEVOTHYROXINE SODIUM [Concomitant]
     Dosage: 50 MCG
     Route: 048
  12. MULTI-VITAMINS [Concomitant]
     Route: 048
  13. ALPRAZOLAM [Concomitant]
     Dosage: 0.5 MG
     Route: 048

REACTIONS (6)
  - BLOOD POTASSIUM DECREASED [None]
  - BLOOD PRESSURE SYSTOLIC INCREASED [None]
  - CHEST PAIN [None]
  - POLLAKIURIA [None]
  - PULMONARY FIBROSIS [None]
  - SINUS TACHYCARDIA [None]
